FAERS Safety Report 9425077 (Version 4)
Quarter: 2013Q4

REPORT INFORMATION
  Report Type: Report from Study
  Country: IE (occurrence: IE)
  Receive Date: 20130729
  Receipt Date: 20131015
  Transmission Date: 20140711
  Serious: Yes (Other)
  Sender: FDA-Public Use
  Company Number: IE-JNJFOC-20130600911

PATIENT
  Age: 29 Year
  Sex: Female

DRUGS (2)
  1. XEPLION [Suspect]
     Indication: SCHIZOPHRENIA
     Route: 030
     Dates: start: 201102
  2. XEPLION [Suspect]
     Indication: SCHIZOPHRENIA
     Route: 030
     Dates: start: 20111012

REACTIONS (9)
  - Schizophrenia [Unknown]
  - Depression [Unknown]
  - Affect lability [Not Recovered/Not Resolved]
  - Insomnia [Unknown]
  - Sedation [Recovered/Resolved]
  - Fatigue [Unknown]
  - Asthenia [Unknown]
  - Thinking abnormal [Unknown]
  - Lethargy [Not Recovered/Not Resolved]
